FAERS Safety Report 5506906-4 (Version None)
Quarter: 2007Q4

REPORT INFORMATION
  Report Type: 
  Country: None (occurrence: None)
  Receive Date: 20071101
  Receipt Date: 20071015
  Transmission Date: 20080405
  Serious: Yes (Hospitalization)
  Sender: FDA-Public Use
  Company Number: US021462

PATIENT
  Age: 37 Year
  Sex: Female
  Weight: 79.8331 kg

DRUGS (7)
  1. PROVIGIL [Suspect]
     Indication: FATIGUE
     Dosage: 200 MG QD ORAL
     Route: 048
     Dates: start: 20070906, end: 20071002
  2. ZOLOFT [Concomitant]
  3. PREDNISONE [Concomitant]
  4. PROCARDIA [Concomitant]
  5. ALTACE [Concomitant]
  6. OSCAL [Concomitant]
  7. ASPIRIN [Concomitant]

REACTIONS (2)
  - NEUTROPHIL COUNT DECREASED [None]
  - SYSTEMIC LUPUS ERYTHEMATOSUS [None]
